FAERS Safety Report 11943288 (Version 1)
Quarter: 2016Q1

REPORT INFORMATION
  Report Type: Spontaneous
  Country: US (occurrence: US)
  Receive Date: 20160125
  Receipt Date: 20160125
  Transmission Date: 20160526
  Serious: No
  Sender: FDA-Public Use
  Company Number: US-UNITED THERAPEUTICS-UNT-2015-011109

PATIENT
  Age: 19 Year
  Sex: Female
  Weight: 83.9 kg

DRUGS (3)
  1. ADCIRCA [Concomitant]
     Active Substance: TADALAFIL
     Indication: PRODUCT USED FOR UNKNOWN INDICATION
  2. REMODULIN [Suspect]
     Active Substance: TREPROSTINIL
     Indication: PULMONARY ARTERIAL HYPERTENSION
     Dosage: 0.0645 ?G/KG/MIN, CONTINUING
     Route: 058
     Dates: start: 20140919
  3. REMODULIN [Suspect]
     Active Substance: TREPROSTINIL
     Dosage: 0.0805 ?G/KG, CONTINUING
     Route: 058

REACTIONS (7)
  - Diarrhoea [Unknown]
  - Device issue [Unknown]
  - Dysmenorrhoea [Unknown]
  - Device issue [Unknown]
  - Infusion site pain [Unknown]
  - Drug dose omission [Unknown]
  - Acne [Unknown]

NARRATIVE: CASE EVENT DATE: 201509
